FAERS Safety Report 6708869-2 (Version None)
Quarter: 2010Q2

REPORT INFORMATION
  Report Type: 
  Country: None (occurrence: None)
  Receive Date: 20100504
  Receipt Date: 20100423
  Transmission Date: 20101027
  Serious: Yes (Other)
  Sender: FDA-Public Use
  Company Number: US-JNJFOC-20100406951

PATIENT
  Sex: Female
  Weight: 58.06 kg

DRUGS (8)
  1. FENTANYL-100 [Suspect]
     Indication: BACK PAIN
     Dosage: 100 UG/HR AND 50 UG/HR
     Route: 062
  2. FENTANYL-100 [Suspect]
     Route: 062
  3. FENTANYL-100 [Suspect]
     Route: 062
  4. FENTANYL-100 [Suspect]
     Route: 062
  5. FENTANYL CITRATE [Suspect]
     Indication: BACK PAIN
     Route: 062
  6. FENTANYL CITRATE [Suspect]
     Route: 062
  7. HYDROCODONE BITARTRATE [Concomitant]
     Indication: SLEEP DISORDER
     Dosage: 7.5 - 500 MG
     Route: 048
  8. NORFLEX [Concomitant]
     Indication: HYPOTONIA
     Route: 048

REACTIONS (3)
  - BACK PAIN [None]
  - INTERVERTEBRAL DISC PROTRUSION [None]
  - WRONG TECHNIQUE IN DRUG USAGE PROCESS [None]
